FAERS Safety Report 14057204 (Version 2)
Quarter: 2017Q4

REPORT INFORMATION
  Report Type: Report from Study
  Country: US (occurrence: US)
  Receive Date: 20171006
  Receipt Date: 20171113
  Transmission Date: 20180321
  Serious: Yes (Other)
  Sender: FDA-Public Use
  Company Number: US-BAYER-2017-186044

PATIENT
  Age: 53 Year
  Sex: Female

DRUGS (2)
  1. STIVARGA [Suspect]
     Active Substance: REGORAFENIB
     Indication: GASTROINTESTINAL STROMAL TUMOUR
     Dosage: 160 MG DAILY/ 21 DAYS ON AND 7 DAYS OFF
     Route: 048
     Dates: start: 20170903
  2. STIVARGA [Suspect]
     Active Substance: REGORAFENIB
     Indication: COLORECTAL CANCER

REACTIONS (7)
  - Skin papilloma [None]
  - Lip pain [None]
  - Abdominal pain upper [Recovered/Resolved]
  - Cancer pain [None]
  - Fatigue [None]
  - Decreased activity [None]
  - Fatigue [None]

NARRATIVE: CASE EVENT DATE: 201709
